FAERS Safety Report 9530435 (Version 4)
Quarter: 2014Q3

REPORT INFORMATION
  Report Type: Spontaneous
  Country: CA (occurrence: CA)
  Receive Date: 20130918
  Receipt Date: 20140703
  Transmission Date: 20150326
  Serious: Yes (Other)
  Sender: FDA-Public Use
  Company Number: CA-ROCHE-GNE309842

PATIENT
  Sex: Female

DRUGS (2)
  1. XOLAIR [Suspect]
     Active Substance: OMALIZUMAB
     Dosage: 375 MG, Q2W
     Route: 058
     Dates: start: 20100824
  2. XOLAIR [Suspect]
     Active Substance: OMALIZUMAB
     Indication: ASTHMA
     Dosage: 375 MG, Q2W
     Route: 058
     Dates: start: 20081014

REACTIONS (9)
  - Dyspnoea [Unknown]
  - Emotional disorder [Unknown]
  - Pulmonary function test abnormal [Unknown]
  - Mental disorder [Unknown]
  - Malaise [Unknown]
  - Feeling cold [Unknown]
  - Immunodeficiency [Unknown]
  - Staphylococcal infection [Unknown]
  - Reproductive tract disorder [Unknown]
